FAERS Safety Report 5241546-6 (Version None)
Quarter: 2007Q1

REPORT INFORMATION
  Report Type: 
  Country: None (occurrence: None)
  Receive Date: 20070215
  Receipt Date: 20070215
  Transmission Date: 20070707
  Serious: Yes (Life-Threatening, Hospitalization, Disabling)
  Sender: FDA-Public Use
  Company Number: None

PATIENT
  Sex: Female

DRUGS (1)
  1. ORTHO EVRA [Suspect]
     Indication: CONTRACEPTION
     Dosage: PATCH WEEKLY SKIN
     Route: 050
     Dates: start: 20050401, end: 20060201

REACTIONS (1)
  - INTRACRANIAL VENOUS SINUS THROMBOSIS [None]
